FAERS Safety Report 4363964-0 (Version None)
Quarter: 2004Q2

REPORT INFORMATION
  Report Type: 
  Country: None (occurrence: None)
  Receive Date: 20040525
  Receipt Date: 20040420
  Transmission Date: 20050107
  Serious: Yes (Hospitalization)
  Sender: FDA-Public Use
  Company Number: JP-BRISTOL-MYERS SQUIBB COMPANY-12566477

PATIENT
  Age: 79 Year
  Sex: Male

DRUGS (2)
  1. TAXOL [Suspect]
     Indication: LUNG NEOPLASM MALIGNANT
     Dosage: THERAPY DATES: 28-JAN-2004 TO 19-FEB-2004
     Route: 042
     Dates: start: 20040219, end: 20040219
  2. PARAPLATIN [Suspect]
     Indication: LUNG NEOPLASM MALIGNANT
     Dosage: THERAPY DATES: 28-JAN-2004 TO 19-FEB-2004
     Route: 042
     Dates: start: 20040219, end: 20040219

REACTIONS (1)
  - INTERSTITIAL LUNG DISEASE [None]
